FAERS Safety Report 6985722-0 (Version None)
Quarter: 2010Q3

REPORT INFORMATION
  Report Type: 
  Country: None (occurrence: None)
  Receive Date: 20100913
  Receipt Date: 20100827
  Transmission Date: 20110219
  Serious: Yes (Life-Threatening)
  Sender: FDA-Public Use
  Company Number: 1000016091

PATIENT
  Age: 67 Year
  Sex: Male

DRUGS (5)
  1. ESCITALOPRAM [Suspect]
     Indication: DEPRESSION
     Dates: start: 20100120
  2. SIMVASTATIN [Concomitant]
  3. PLAVIX [Concomitant]
  4. LYSANXIA [Concomitant]
  5. LITHIUM CARBONATE [Concomitant]

REACTIONS (3)
  - DISINHIBITION [None]
  - GUN SHOT WOUND [None]
  - SUICIDE ATTEMPT [None]
